FAERS Safety Report 16828779 (Version 1)
Quarter: 2019Q3

REPORT INFORMATION
  Report Type: Report from Study
  Country: US (occurrence: US)
  Receive Date: 20190919
  Receipt Date: 20190919
  Transmission Date: 20191005
  Serious: Yes (Death)
  Sender: FDA-Public Use
  Company Number: US-JNJFOC-20190919293

PATIENT

DRUGS (5)
  1. CYCLOPHOSPHAMIDE. [Suspect]
     Active Substance: CYCLOPHOSPHAMIDE
     Indication: PLASMA CELL LEUKAEMIA
     Dosage: EVERY 12 HOURS, DAYS 1-4
     Route: 042
  2. BORTEZOMIB. [Suspect]
     Active Substance: BORTEZOMIB
     Indication: PLASMA CELL LEUKAEMIA
     Dosage: DAYS 1, 4, 8, AND 11
     Route: 058
  3. MESNA. [Suspect]
     Active Substance: MESNA
     Indication: PLASMA CELL LEUKAEMIA
     Dosage: EVERY 12 HOURS, DAYS 1-4
     Route: 042
  4. DOXORUBICIN HYDROCHLORIDE. [Suspect]
     Active Substance: DOXORUBICIN HYDROCHLORIDE
     Indication: PLASMA CELL LEUKAEMIA
     Dosage: CONTINUOUS INFUSION, DAYS 1-4
     Route: 042
  5. DEXAMETHASONE. [Suspect]
     Active Substance: DEXAMETHASONE
     Indication: PLASMA CELL LEUKAEMIA
     Dosage: DAILY ON DAYS 1-4, 9-12, AND 17-20
     Route: 048

REACTIONS (1)
  - Respiratory failure [Fatal]
